FAERS Safety Report 23970628 (Version 1)
Quarter: 2024Q2

REPORT INFORMATION
  Report Type: Spontaneous
  Country: CN (occurrence: CN)
  Receive Date: 20240613
  Receipt Date: 20240613
  Transmission Date: 20240716
  Serious: Yes (Hospitalization, Other)
  Sender: FDA-Public Use
  Company Number: None

PATIENT
  Age: 3 Year
  Sex: Male
  Weight: 18.5 kg

DRUGS (5)
  1. CYCLOPHOSPHAMIDE [Suspect]
     Active Substance: CYCLOPHOSPHAMIDE
     Indication: Acute lymphocytic leukaemia
     Dosage: 0.72 G, ONE TIME IN ONE DAY, DILUTED WITH 0.9% SODIUM CHLORIDE INJECTION 250ML
     Route: 041
     Dates: start: 20231130, end: 20231130
  2. SODIUM CHLORIDE [Suspect]
     Active Substance: SODIUM CHLORIDE
     Indication: Medication dilution
     Dosage: 250 ML ONE TIME IN ONE DAY USED TO DILUTE CYCLOPHOSPHAMIDE INJECTION 0.72G
     Route: 041
     Dates: start: 20231130
  3. DEXTROSE\SODIUM CHLORIDE [Suspect]
     Active Substance: DEXTROSE\SODIUM CHLORIDE
     Indication: Medication dilution
     Dosage: 4:1, 250 ML, EVERY 12 HOURS USED TO DILUTE CYTARABINE INJECTION 0.72G (D1-D4)
     Route: 041
     Dates: start: 20231130, end: 20231203
  4. MERCAPTOPURINE [Suspect]
     Active Substance: MERCAPTOPURINE
     Indication: Acute lymphocytic leukaemia
     Dosage: 36 MG, ONCE A DAY (D1-D4)
     Route: 048
     Dates: start: 20231130, end: 20231203
  5. CYTARABINE [Suspect]
     Active Substance: CYTARABINE
     Indication: Acute lymphocytic leukaemia
     Dosage: 0.72 G, TWO TIMES A DAY DILUTED WITH 4: 1 GLUCOSE AND SODIUM CHLORIDE INJECTION 250ML (D1-D4)
     Route: 041
     Dates: start: 20231130, end: 20231203

REACTIONS (1)
  - Myelosuppression [Recovering/Resolving]

NARRATIVE: CASE EVENT DATE: 20231206
